FAERS Safety Report 19854638 (Version 2)
Quarter: 2021Q3

REPORT INFORMATION
  Report Type: Spontaneous
  Country: CN (occurrence: CN)
  Receive Date: 20210920
  Receipt Date: 20210926
  Transmission Date: 20211014
  Serious: Yes (Other)
  Sender: FDA-Public Use
  Company Number: CN-ROCHE-2909573

PATIENT
  Age: 49 Year
  Sex: Male

DRUGS (10)
  1. PACLITAXEL. [Concomitant]
     Active Substance: PACLITAXEL
     Dosage: DAY1,8
     Dates: start: 20200530
  2. CARBOPLATIN. [Concomitant]
     Active Substance: CARBOPLATIN
     Dosage: 24?JUN?2020, 18?JUL?2020; DAY1
  3. PEMETREXED. [Concomitant]
     Active Substance: PEMETREXED
     Indication: NON-SMALL CELL LUNG CANCER
     Dosage: DAY1
     Dates: start: 20191223, end: 20200312
  4. PACLITAXEL. [Concomitant]
     Active Substance: PACLITAXEL
     Dosage: 24?JUN?2020, 18?JUL?2020; DAY1,8
  5. AVASTIN [Suspect]
     Active Substance: BEVACIZUMAB
     Indication: NON-SMALL CELL LUNG CANCER
     Dosage: SUBSEQUENT DOSES OF BEVACIZUMAB WERE ADMINISTERED ON 21/JAN/2021, 09/FEB/2021, 02/MAR/2021, 24/MAR/2
     Route: 042
     Dates: start: 20201231
  6. CARBOPLATIN. [Concomitant]
     Active Substance: CARBOPLATIN
     Indication: NON-SMALL CELL LUNG CANCER
     Dosage: DAY1
     Dates: start: 20200429
  7. PACLITAXEL. [Concomitant]
     Active Substance: PACLITAXEL
     Indication: NON-SMALL CELL LUNG CANCER
     Dosage: DAY1,8
     Dates: start: 20200429
  8. TECENTRIQ [Suspect]
     Active Substance: ATEZOLIZUMAB
     Indication: NON-SMALL CELL LUNG CANCER
     Dosage: SUBSEQUENT DOSES OF ATEZOLIZUMAB WERE ADMINISTERED ON 21/MAY/2020, 24/JUN/2020, 18/JUL/2020, 17/AUG/
     Route: 041
     Dates: start: 20200429
  9. CISPLATIN. [Concomitant]
     Active Substance: CISPLATIN
     Indication: NON-SMALL CELL LUNG CANCER
     Dosage: DAY1
     Dates: start: 20191223, end: 20200312
  10. CARBOPLATIN. [Concomitant]
     Active Substance: CARBOPLATIN
     Dosage: DAY1
     Dates: start: 20200530

REACTIONS (3)
  - Drug-induced liver injury [Unknown]
  - Alopecia [Unknown]
  - Myelosuppression [Unknown]
